FAERS Safety Report 4735784-6 (Version None)
Quarter: 2005Q3

REPORT INFORMATION
  Report Type: 
  Country: None (occurrence: None)
  Receive Date: 20050805
  Receipt Date: 20050505
  Transmission Date: 20060218
  Serious: Yes (Other)
  Sender: FDA-Public Use
  Company Number: 2005UW07019

PATIENT
  Age: 72 Year
  Sex: Male
  Weight: 77.1 kg

DRUGS (3)
  1. TOPROL-XL [Suspect]
     Indication: HYPERTENSION
     Route: 048
  2. TOPROL-XL [Suspect]
     Indication: ARRHYTHMIA
     Route: 048
  3. TOPAMAX [Suspect]

REACTIONS (8)
  - ASTHENIA [None]
  - BLINDNESS [None]
  - CARDIAC DISORDER [None]
  - DRUG DISPENSING ERROR [None]
  - MEDICATION ERROR [None]
  - NIGHT BLINDNESS [None]
  - PULMONARY OEDEMA [None]
  - WEIGHT DECREASED [None]
